FAERS Safety Report 12993508 (Version 1)
Quarter: 2016Q4

REPORT INFORMATION
  Report Type: Spontaneous
  Country: US (occurrence: US)
  Receive Date: 20161202
  Receipt Date: 20161202
  Transmission Date: 20170207
  Serious: No
  Sender: FDA-Public Use
  Company Number: US-ASTRAZENECA-2016SF24978

PATIENT

DRUGS (6)
  1. SYMBICORT [Suspect]
     Active Substance: BUDESONIDE\FORMOTEROL FUMARATE DIHYDRATE
     Route: 055
  2. DALIRESP [Suspect]
     Active Substance: ROFLUMILAST
     Route: 048
  3. VENTOLIN [Suspect]
     Active Substance: ALBUTEROL SULFATE
     Route: 065
  4. SPIRIVA [Suspect]
     Active Substance: TIOTROPIUM BROMIDE MONOHYDRATE
     Route: 065
  5. ALBUTEROL SOLUTION NEBULISER SOLUTION [Suspect]
     Active Substance: ALBUTEROL
     Route: 055
  6. ADVAIR HFA [Suspect]
     Active Substance: FLUTICASONE PROPIONATE\SALMETEROL XINAFOATE
     Route: 065

REACTIONS (2)
  - Drug effect incomplete [Unknown]
  - Chronic obstructive pulmonary disease [Unknown]
